FAERS Safety Report 6880740-5 (Version None)
Quarter: 2010Q3

REPORT INFORMATION
  Report Type: 
  Country: None (occurrence: None)
  Receive Date: 20100728
  Receipt Date: 20100716
  Transmission Date: 20110219
  Serious: Yes (Hospitalization, Other)
  Sender: FDA-Public Use
  Company Number: US-BAYER-201016019NA

PATIENT
  Age: 46 Year
  Sex: Female

DRUGS (8)
  1. BETASERON [Suspect]
     Indication: RELAPSING-REMITTING MULTIPLE SCLEROSIS
     Dosage: TOTAL DAILY DOSE: 6 MIU
     Route: 058
     Dates: start: 20100113
  2. BETASERON [Suspect]
     Dosage: TOTAL DAILY DOSE: 8 MIU
     Route: 058
  3. BETASERON [Suspect]
     Dosage: TOTAL DAILY DOSE: 8 MIU
     Route: 058
  4. BETASERON [Suspect]
     Dosage: TOTAL DAILY DOSE: 8 MIU
     Route: 058
     Dates: end: 20100607
  5. TOPAMAX [Suspect]
     Indication: MIGRAINE
     Route: 065
     Dates: start: 20100201
  6. TOPAMAX [Suspect]
     Route: 065
  7. AMOXICILLIN [Concomitant]
     Indication: SINUSITIS
     Dosage: TOTAL DAILY DOSE: 875 MG
     Route: 048
  8. PRIMIDONE [Concomitant]
     Indication: TREMOR
     Dosage: TOTAL DAILY DOSE: 200 MG
     Route: 048

REACTIONS (7)
  - DELIRIUM [None]
  - DEPRESSION [None]
  - INSOMNIA [None]
  - MIGRAINE [None]
  - PAIN [None]
  - SINUSITIS [None]
  - VAGINAL CANCER [None]
